FAERS Safety Report 4602024-8 (Version None)
Quarter: 2005Q1

REPORT INFORMATION
  Report Type: 
  Country: None (occurrence: None)
  Receive Date: 20050201
  Receipt Date: 20040305
  Transmission Date: 20050727
  Serious: Yes (Other)
  Sender: FDA-Public Use
  Company Number: 200414761BWH

PATIENT

DRUGS (1)
  1. AVELOX [Suspect]

REACTIONS (1)
  - ANAPHYLACTIC REACTION [None]
